FAERS Safety Report 14824864 (Version 2)
Quarter: 2020Q2

REPORT INFORMATION
  Report Type: Report from Study
  Country: CO (occurrence: CO)
  Receive Date: 20180430
  Receipt Date: 20200507
  Transmission Date: 20200713
  Serious: Yes (Hospitalization)
  Sender: FDA-Public Use
  Company Number: PHHY2018CO054133

PATIENT
  Sex: Male
  Weight: 75 kg

DRUGS (2)
  1. TASIGNA [Suspect]
     Active Substance: NILOTINIB
     Dosage: 300 MG, Q12H
     Route: 048
  2. TASIGNA [Suspect]
     Active Substance: NILOTINIB
     Indication: CHRONIC MYELOID LEUKAEMIA
     Dosage: 600 MG, QD (300MG EVERY 12 HOURS)
     Route: 048
     Dates: start: 20160818, end: 20171220

REACTIONS (9)
  - Hepatic failure [Unknown]
  - Asthenia [Recovering/Resolving]
  - Hepatitis acute [Recovering/Resolving]
  - Inappropriate schedule of product administration [Unknown]
  - Eye colour change [Unknown]
  - Nausea [Unknown]
  - Dizziness [Recovering/Resolving]
  - Yellow skin [Unknown]
  - Vomiting [Recovering/Resolving]
